FAERS Safety Report 4622054-X (Version None)
Quarter: 2005Q1

REPORT INFORMATION
  Report Type: 
  Country: None (occurrence: None)
  Receive Date: 20050328
  Receipt Date: 20050316
  Transmission Date: 20050727
  Serious: Yes (Hospitalization)
  Sender: FDA-Public Use
  Company Number: S05-USA-00293-01

PATIENT
  Age: 33 Year
  Sex: Female
  Weight: 48.9885 kg

DRUGS (11)
  1. LEXAPRO [Suspect]
     Indication: DEPRESSION
     Dosage: 5 MG QD PO
     Route: 048
     Dates: start: 20041202, end: 20041204
  2. LEXAPRO [Suspect]
     Indication: DEPRESSION
     Dosage: 10 MG QD PO
     Route: 048
     Dates: start: 20041205, end: 20041212
  3. INH [Concomitant]
  4. RIFAMPIN [Concomitant]
  5. RIFABUTIN [Concomitant]
  6. PYRAZINAMIDE [Concomitant]
  7. ETHAMBUTOL HCL [Concomitant]
  8. VITAMIN B6 [Concomitant]
  9. BACTRIM DS [Concomitant]
  10. NYSTATIN [Concomitant]
  11. IBUPROFEN [Concomitant]

REACTIONS (5)
  - ANTINUCLEAR ANTIBODY POSITIVE [None]
  - CARDIOLIPIN ANTIBODY POSITIVE [None]
  - GANGRENE [None]
  - VASCULAR OCCLUSION [None]
  - VASCULITIS [None]
